FAERS Safety Report 11374868 (Version 1)
Quarter: 2015Q3

REPORT INFORMATION
  Report Type: Spontaneous
  Country: IT (occurrence: IT)
  Receive Date: 20150813
  Receipt Date: 20150813
  Transmission Date: 20151125
  Serious: Yes (Other)
  Sender: FDA-Public Use
  Company Number: PHHY2015IT095905

PATIENT
  Age: 42 Year
  Sex: Female

DRUGS (2)
  1. GILENYA [Suspect]
     Active Substance: FINGOLIMOD HYDROCHLORIDE
     Indication: MULTIPLE SCLEROSIS
     Dosage: 50 UG, QD
     Route: 048
     Dates: start: 20140813, end: 20150525
  2. PROPILTHIOURACIL [Concomitant]
     Indication: HYPERTHYROIDISM
     Dosage: 200 MG, UNK
     Route: 048

REACTIONS (6)
  - Lymphopenia [Unknown]
  - Prescribed underdose [Unknown]
  - Off label use [Unknown]
  - Dyspnoea exertional [Unknown]
  - Ventricular hypokinesia [Unknown]
  - Asthenia [Unknown]

NARRATIVE: CASE EVENT DATE: 20140813
